FAERS Safety Report 6913645-1 (Version None)
Quarter: 2010Q3

REPORT INFORMATION
  Report Type: 
  Country: None (occurrence: None)
  Receive Date: 20100809
  Receipt Date: 20100729
  Transmission Date: 20110219
  Serious: Yes (Other)
  Sender: FDA-Public Use
  Company Number: US-JNJFOC-20100300033

PATIENT
  Sex: Male

DRUGS (5)
  1. LEVAQUIN [Suspect]
     Indication: PROSTATITIS
     Route: 065
  2. LEVAQUIN [Suspect]
     Indication: SINUSITIS
     Route: 065
  3. LEVAQUIN [Suspect]
     Indication: CYSTITIS
     Route: 065
  4. CORTISONE SHOT [Suspect]
     Indication: PRODUCT USED FOR UNKNOWN INDICATION
  5. CIPROFLOXACIN [Suspect]
     Indication: PROSTATITIS

REACTIONS (6)
  - BURSITIS [None]
  - ENTHESOPATHY [None]
  - MUSCLE RUPTURE [None]
  - ROTATOR CUFF SYNDROME [None]
  - TENDON INJURY [None]
  - TENDONITIS [None]
